FAERS Safety Report 9028690 (Version 1)
Quarter: 2013Q1

REPORT INFORMATION
  Report Type: Spontaneous
  Country: PH (occurrence: PH)
  Receive Date: 20130124
  Receipt Date: 20130124
  Transmission Date: 20140127
  Serious: Yes (Death, Hospitalization)
  Sender: FDA-Public Use
  Company Number: PHHY2013PH006261

PATIENT
  Age: 20 Year
  Sex: Male

DRUGS (2)
  1. GLIVEC [Suspect]
     Indication: CHRONIC MYELOID LEUKAEMIA
     Dosage: UNK
  2. GLIVEC [Suspect]
     Dosage: 3 TABLETS PER DAY

REACTIONS (4)
  - Death [Fatal]
  - Loss of consciousness [Unknown]
  - Headache [Unknown]
  - Thrombocytopenia [Recovering/Resolving]
